FAERS Safety Report 4936569-8 (Version None)
Quarter: 2006Q1

REPORT INFORMATION
  Report Type: 
  Country: None (occurrence: None)
  Receive Date: 20060307
  Receipt Date: 20051005
  Transmission Date: 20060701
  Serious: Yes (Hospitalization)
  Sender: FDA-Public Use
  Company Number: US-MERCK-0510USA04142

PATIENT
  Age: 46 Year
  Sex: Male
  Weight: 86 kg

DRUGS (7)
  1. IBUPROFEN [Concomitant]
     Route: 065
  2. PRILOSEC [Concomitant]
     Route: 048
     Dates: start: 20011107
  3. VIOXX [Suspect]
     Indication: ARTHRALGIA
     Route: 048
     Dates: start: 20000101, end: 20040101
  4. VIOXX [Suspect]
     Route: 048
     Dates: start: 20011107, end: 20030103
  5. VIOXX [Suspect]
     Route: 048
     Dates: start: 20030103
  6. NAPROSYN [Concomitant]
     Route: 048
     Dates: start: 20010406, end: 20030703
  7. SKELAXIN [Concomitant]
     Route: 048
     Dates: start: 20010406

REACTIONS (10)
  - CARDIOVASCULAR DISORDER [None]
  - CHEST PAIN [None]
  - DYSPNOEA [None]
  - GASTROINTESTINAL DISORDER [None]
  - HEADACHE [None]
  - HEPATIC STEATOSIS [None]
  - HEPATOSPLENOMEGALY [None]
  - NECK INJURY [None]
  - OVERDOSE [None]
  - ULCER [None]
